FAERS Safety Report 18291877 (Version 1)
Quarter: 2020Q3

REPORT INFORMATION
  Report Type: Spontaneous
  Country: US (occurrence: US)
  Receive Date: 20200921
  Receipt Date: 20200921
  Transmission Date: 20201103
  Serious: Yes (Death, Other)
  Sender: FDA-Public Use
  Company Number: US-PURDUE-USA-2020-0167078

PATIENT
  Age: 68 Year
  Sex: Female

DRUGS (1)
  1. OXYCONTIN [Suspect]
     Active Substance: OXYCODONE HYDROCHLORIDE
     Indication: PAIN
     Dosage: UNK
     Route: 048
     Dates: start: 201505, end: 201508

REACTIONS (5)
  - Nervous system disorder [Unknown]
  - Immune system disorder [Unknown]
  - Drug dependence [Unknown]
  - Death [Fatal]
  - Drug withdrawal syndrome [Unknown]

NARRATIVE: CASE EVENT DATE: 201505
